FAERS Safety Report 19806777 (Version 2)
Quarter: 2022Q1

REPORT INFORMATION
  Report Type: Spontaneous
  Country: US (occurrence: US)
  Receive Date: 20210908
  Receipt Date: 20220315
  Transmission Date: 20220423
  Serious: Yes (Hospitalization, Other)
  Sender: FDA-Public Use
  Company Number: US-AMERICAN REGENT INC-2021000192

PATIENT
  Sex: Female
  Weight: 68.027 kg

DRUGS (2)
  1. INJECTAFER [Suspect]
     Active Substance: FERRIC CARBOXYMALTOSE
     Indication: Iron deficiency anaemia
     Dosage: 750 MILLIGRAM, IN 250 ML SODIUM CHLORIDE IV SOL AT RATE 265 ML/HR
     Route: 042
     Dates: start: 20200723, end: 20200723
  2. SOLU-MEDROL [Concomitant]
     Active Substance: METHYLPREDNISOLONE SODIUM SUCCINATE
     Indication: Premedication
     Dosage: 40 MILLIGRAM IN 50 ML SODIUM CHLORIDE IV SOL
     Dates: start: 20200723, end: 20200723

REACTIONS (5)
  - Muscle spasms [Unknown]
  - Respiration abnormal [Not Recovered/Not Resolved]
  - Lethargy [Not Recovered/Not Resolved]
  - Hypophosphataemia [Recovering/Resolving]
  - Serum ferritin increased [Not Recovered/Not Resolved]

NARRATIVE: CASE EVENT DATE: 20200101
